FAERS Safety Report 20195400 (Version 1)
Quarter: 2021Q4

REPORT INFORMATION
  Report Type: Spontaneous
  Country: CN (occurrence: CN)
  Receive Date: 20211216
  Receipt Date: 20211216
  Transmission Date: 20220303
  Serious: Yes (Other)
  Sender: FDA-Public Use
  Company Number: CN-PFIZER INC-202101752216

PATIENT
  Age: 6 Year
  Sex: Female
  Weight: 24 kg

DRUGS (7)
  1. METHOTREXATE [Suspect]
     Active Substance: METHOTREXATE
     Indication: Diffuse large B-cell lymphoma
     Dosage: 2.88 G, 1X/DAY
     Route: 041
     Dates: start: 20211106, end: 20211106
  2. CYCLOPHOSPHAMIDE [Suspect]
     Active Substance: CYCLOPHOSPHAMIDE
     Indication: Diffuse large B-cell lymphoma
     Dosage: 0.24 G, 2X/DAY
     Route: 041
     Dates: start: 20211106, end: 20211109
  3. DAUNORUBICIN HYDROCHLORIDE [Suspect]
     Active Substance: DAUNORUBICIN HYDROCHLORIDE
     Indication: Diffuse large B-cell lymphoma
     Dosage: ON D1 (06NOV) AND D3 (08NOV)
     Route: 041
     Dates: start: 20211106, end: 20211108
  4. VINCRISTINE SULFATE [Suspect]
     Active Substance: VINCRISTINE SULFATE
     Indication: Diffuse large B-cell lymphoma
     Dosage: 1.92 MG, 1X/DAY
     Route: 041
     Dates: start: 20211106, end: 20211106
  5. PREDNISONE ACETATE [Suspect]
     Active Substance: PREDNISONE ACETATE
     Indication: Diffuse large B-cell lymphoma
     Dosage: 6 TABLETS IN THE MORNING AND 5.5 TABLETS IN THE NOON
     Route: 048
     Dates: start: 20211029, end: 20211110
  6. LEVOLEUCOVORIN CALCIUM [Concomitant]
     Active Substance: LEVOLEUCOVORIN CALCIUM
     Indication: Diffuse large B-cell lymphoma
     Dosage: 7.2 MG, 4X/DAY
     Route: 041
     Dates: start: 20211107, end: 20211109
  7. ONDANSETRON HYDROCHLORIDE [Concomitant]
     Active Substance: ONDANSETRON HYDROCHLORIDE
     Indication: Prophylaxis of nausea and vomiting
     Dosage: 4 MG, 2X/DAY
     Route: 042
     Dates: start: 20211106, end: 20211109

REACTIONS (4)
  - Ocular hypertension [Recovering/Resolving]
  - Myelosuppression [Recovering/Resolving]
  - Dizziness [Recovering/Resolving]
  - Vomiting [Recovering/Resolving]

NARRATIVE: CASE EVENT DATE: 20211110
